FAERS Safety Report 11164020 (Version 4)
Quarter: 2016Q1

REPORT INFORMATION
  Report Type: Spontaneous
  Country: US (occurrence: US)
  Receive Date: 20150604
  Receipt Date: 20160309
  Transmission Date: 20160525
  Serious: No
  Sender: FDA-Public Use
  Company Number: US-PFIZER INC-2015183078

PATIENT
  Age: 94 Year
  Sex: Female
  Weight: 65.32 kg

DRUGS (6)
  1. ZYRTEC [Concomitant]
     Active Substance: CETIRIZINE HYDROCHLORIDE
     Dosage: UNK
  2. TRAMADOL. [Concomitant]
     Active Substance: TRAMADOL
     Indication: PAIN
     Dosage: 50 MG, AS NEEDED
  3. LAXATIVE [Concomitant]
     Active Substance: UNSPECIFIED INGREDIENT
     Indication: CONSTIPATION
     Dosage: UNK, 1X/DAY (CAP FULL EVERY MORNING)
  4. LYRICA [Suspect]
     Active Substance: PREGABALIN
     Indication: PAIN
     Dosage: 200 MG, 2X/DAY
     Route: 048
  5. CITALOPRAM [Concomitant]
     Active Substance: CITALOPRAM HYDROBROMIDE
     Indication: NEURALGIA
     Dosage: 20 MG, 1X/DAY
  6. LYRICA [Suspect]
     Active Substance: PREGABALIN
     Indication: NEUROPATHY PERIPHERAL

REACTIONS (13)
  - Nasal congestion [Recovered/Resolved with Sequelae]
  - Viral upper respiratory tract infection [Recovered/Resolved with Sequelae]
  - Malaise [Unknown]
  - Cough [Unknown]
  - Hyperhidrosis [Unknown]
  - Influenza [Unknown]
  - Chills [Unknown]
  - Hypersensitivity [Unknown]
  - Insomnia [Unknown]
  - Pain [Unknown]
  - Bronchitis [Unknown]
  - Weight increased [Unknown]
  - Protein total decreased [Unknown]

NARRATIVE: CASE EVENT DATE: 201602
